FAERS Safety Report 7700730-X (Version None)
Quarter: 2011Q3

REPORT INFORMATION
  Report Type: 
  Country: None (occurrence: None)
  Receive Date: 20110817
  Receipt Date: 20110809
  Transmission Date: 20111222
  Serious: Yes (Death)
  Sender: FDA-Public Use
  Company Number: JPI-P-010155

PATIENT
  Age: 66 Year
  Sex: Female
  Weight: 45.3597 kg

DRUGS (3)
  1. XYREM [Suspect]
     Indication: SLEEP APNOEA SYNDROME
     Dosage: 4.5 GM (2.25 GM, 2 IN 1 D), ORAL, 6 GM (3 GM, 2 IN 1 D), ORAL
     Route: 048
     Dates: start: 20050601
  2. ATORVASTATIN CALCIUM [Concomitant]
  3. WARFARIN SODIUM [Concomitant]

REACTIONS (1)
  - LUNG NEOPLASM MALIGNANT [None]
